FAERS Safety Report 8553048-X (Version None)
Quarter: 2012Q2

REPORT INFORMATION
  Report Type: 
  Country: None (occurrence: None)
  Receive Date: 20120416
  Receipt Date: 20091006
  Transmission Date: 20120825
  Serious: Yes (Other)
  Sender: FDA-Public Use
  Company Number: PHEH2009US11353

PATIENT
  Sex: Male

DRUGS (2)
  1. TEKTURNA [Suspect]
  2. DIOVAN [Suspect]

REACTIONS (1)
  - HYPERTENSION [None]
